FAERS Safety Report 14819427 (Version 1)
Quarter: 2018Q2

REPORT INFORMATION
  Report Type: Spontaneous
  Country: IT (occurrence: IT)
  Receive Date: 20180427
  Receipt Date: 20180427
  Transmission Date: 20180711
  Serious: Yes (Hospitalization)
  Sender: FDA-Public Use
  Company Number: IT-BAYER-2018-080262

PATIENT
  Age: 85 Year
  Sex: Female

DRUGS (2)
  1. TRIATEC (RAMIPRIL) [Concomitant]
     Active Substance: RAMIPRIL
     Dosage: UNK
  2. CARDIOASPIRIN 100 MG [Suspect]
     Active Substance: ASPIRIN
     Indication: THROMBOSIS PROPHYLAXIS
     Dosage: 100 MG, QD
     Route: 048
     Dates: start: 20170101, end: 20171006

REACTIONS (3)
  - Aphasia [Unknown]
  - Hemiplegia [Unknown]
  - Cerebral haemorrhage [Unknown]

NARRATIVE: CASE EVENT DATE: 20171006
